FAERS Safety Report 5589836-1 (Version None)
Quarter: 2008Q1

REPORT INFORMATION
  Report Type: 
  Country: None (occurrence: None)
  Receive Date: 20080114
  Receipt Date: 20080103
  Transmission Date: 20080703
  Serious: Yes (Hospitalization)
  Sender: FDA-Public Use
  Company Number: CH-ROCHE-539843

PATIENT
  Age: 90 Year
  Sex: Female
  Weight: 105 kg

DRUGS (7)
  1. ROCEPHIN [Suspect]
     Dosage: DRUG NAME: ROCEPHIN 1 G IMTROCKENAMP. + SOLVENS, INTRAMUSCULAR, AMPULES
     Route: 042
     Dates: start: 20070830, end: 20070830
  2. SIMVASTIN [Suspect]
     Indication: LIPID METABOLISM DISORDER
     Dosage: DRUG NAME: SIMVASTIN-MEPHA
     Route: 048
     Dates: start: 20070830
  3. FLAGYL [Suspect]
     Dosage: DRUG NAME: FLAGYL 500 TABLETTEN,
     Route: 048
     Dates: start: 20070830, end: 20070904
  4. CLEXANE [Concomitant]
     Dosage: FORMULATION: VIALS
     Route: 058
     Dates: start: 20070830, end: 20070911
  5. TORSEMIDE [Concomitant]
     Route: 048
     Dates: end: 20070904
  6. CIPROXIN [Concomitant]
     Dosage: FORMULATION: FILM COATED TABLET
     Route: 048
     Dates: start: 20070902, end: 20070904
  7. ENALAPRIL MALEATE [Concomitant]
     Indication: HYPERTENSION

REACTIONS (3)
  - BLOOD CREATINE PHOSPHOKINASE INCREASED [None]
  - HYPERSENSITIVITY [None]
  - RASH PRURITIC [None]
